FAERS Safety Report 8354021-7 (Version None)
Quarter: 2012Q2

REPORT INFORMATION
  Report Type: 
  Country: None (occurrence: None)
  Receive Date: 20120511
  Receipt Date: 20120505
  Transmission Date: 20120825
  Serious: Yes (Other)
  Sender: FDA-Public Use
  Company Number: US-BAYER-2012-044229

PATIENT
  Age: 53 Year
  Sex: Female

DRUGS (3)
  1. TYLENOL REGULAR [Concomitant]
  2. BETASERON [Suspect]
     Indication: SECONDARY PROGRESSIVE MULTIPLE SCLEROSIS
     Dosage: 6 MIU, QOD
     Route: 058
     Dates: start: 20120329
  3. AMPYRA [Suspect]
     Dosage: UNK
     Dates: start: 20120501

REACTIONS (4)
  - LETHARGY [None]
  - DYSPNOEA [None]
  - COLD SWEAT [None]
  - GAIT DISTURBANCE [None]
